FAERS Safety Report 10905489 (Version 3)
Quarter: 2015Q2

REPORT INFORMATION
  Report Type: Spontaneous
  Country: US (occurrence: US)
  Receive Date: 20150311
  Receipt Date: 20150512
  Transmission Date: 20150821
  Serious: Yes (Hospitalization)
  Sender: FDA-Public Use
  Company Number: US-PFIZER INC-2015083198

PATIENT
  Age: 64 Year
  Sex: Female

DRUGS (28)
  1. EXELON [Concomitant]
     Active Substance: RIVASTIGMINE TARTRATE
     Indication: DEMENTIA
     Dosage: 6 MG, 2X/DAY
  2. PROAIR HFA [Concomitant]
     Active Substance: ALBUTEROL SULFATE
     Indication: BRONCHIAL DISORDER
     Dosage: 2 PUFFS EVERY 4-6 HRS AS NEEDED
  3. RECLAST [Concomitant]
     Active Substance: ZOLEDRONIC ACID
     Dosage: INFUSION 1X PER YEAR
     Dates: start: 20150206
  4. THERATEARS [Concomitant]
     Active Substance: CARBOXYMETHYLCELLULOSE SODIUM
     Indication: DRY EYE
     Dosage: 2 DROPS EACH EYE 3X PER DAY
     Route: 047
  5. HYDROXYZINE HCL [Concomitant]
     Active Substance: HYDROXYZINE HYDROCHLORIDE
     Dosage: UNK
  6. EPIPEN [Concomitant]
     Active Substance: EPINEPHRINE
     Indication: ARTHROPOD STING
     Dosage: 0.3 MG, AS NEEDED
  7. ADVAIR DUSKUS [Concomitant]
     Indication: ASTHMA
     Dosage: 1 PUFF 2X/DAY
  8. LYRICA [Suspect]
     Active Substance: PREGABALIN
     Dosage: 225 MG, 2X/DAY
     Dates: start: 201411
  9. PLAQUENIL [Concomitant]
     Active Substance: HYDROXYCHLOROQUINE SULFATE
     Indication: SYSTEMIC LUPUS ERYTHEMATOSUS
     Dosage: 200 MG AM, 100 MG PM PER DAY
  10. CENTRUM SILVER [Concomitant]
     Active Substance: VITAMINS
     Dosage: 1 DF, 1X/DAY
  11. TRENTAL [Concomitant]
     Active Substance: PENTOXIFYLLINE
     Indication: FIBROMYALGIA
  12. B-12 SHOT [Concomitant]
     Indication: VITAMIN B12 ABNORMAL
     Dosage: 1 DF, MONTHLY
  13. RECLAST [Concomitant]
     Active Substance: ZOLEDRONIC ACID
     Indication: OSTEOPOROSIS
     Dosage: INFUSION 1X PER YEAR
     Dates: start: 201401
  14. CALCIUM CITRATE/VIT D3 [Concomitant]
     Indication: OSTEOPOROSIS
     Dosage: ONE TABLET (630MG/500IU), 2X PER DAY
  15. BENADRYL [Concomitant]
     Active Substance: DIPHENHYDRAMINE HYDROCHLORIDE
     Indication: HYPERSENSITIVITY
     Dosage: 25 MG, 1X/DAY
  16. FISH OIL OMEGA 3 [Concomitant]
     Indication: SJOGREN^S SYNDROME
     Dosage: 1 DF, 1X/DAY (600 MG/300MG - 1 GEL CAP 1X/DAY)
  17. PERCOCET [Concomitant]
     Active Substance: ACETAMINOPHEN\OXYCODONE HYDROCHLORIDE
     Indication: PAIN
     Dosage: 5-325 MG TABLET 1 OR 2 TABLETS EVERY 4 HOURS
  18. TRENTAL [Concomitant]
     Active Substance: PENTOXIFYLLINE
     Indication: ANGIOPATHY
     Dosage: 400 MG, 3X/DAY
  19. LYRICA [Suspect]
     Active Substance: PREGABALIN
     Indication: FIBROMYALGIA
     Dosage: UNSPECIFIED ^LOWER^ DOSE
     Dates: start: 2014
  20. FOLIC ACID. [Concomitant]
     Active Substance: FOLIC ACID
     Dosage: 1 MG, 1X/DAY
  21. ALBUTEROL HFA [Concomitant]
     Active Substance: ALBUTEROL SULFATE
     Indication: ASTHMA
     Dosage: 90 ?G, UNK
  22. VITAMIN D3 [Concomitant]
     Active Substance: CHOLECALCIFEROL
     Indication: VITAMIN D DEFICIENCY
     Dosage: 2000 IU, 1X/DAY
  23. AMOXICILLIN. [Concomitant]
     Active Substance: AMOXICILLIN
     Indication: INFECTION PROPHYLAXIS
     Dosage: 2000 MG, 1X/DAY
  24. LYRICA [Suspect]
     Active Substance: PREGABALIN
     Dosage: 50 MG, 2X/DAY
  25. LIDODERM [Concomitant]
     Active Substance: LIDOCAINE
     Indication: FIBROMYALGIA
     Dosage: 1 DF, AS NEEDED
  26. DIOVAN [Concomitant]
     Active Substance: VALSARTAN
     Indication: HYPERTENSION
     Dosage: 40 MG, 1X/DAY
  27. RESTASIS [Concomitant]
     Active Substance: CYCLOSPORINE
     Indication: DRY EYE
     Dosage: 1 DROP PER EYE TWICE A DAY
     Route: 047
  28. MILK OF MAGNESIA [Concomitant]
     Active Substance: MAGNESIUM HYDROXIDE
     Indication: CONSTIPATION
     Dosage: UNK, AS NEEDED

REACTIONS (5)
  - Dyskinesia [Not Recovered/Not Resolved]
  - Tremor [Not Recovered/Not Resolved]
  - Therapeutic response unexpected [Not Recovered/Not Resolved]
  - Pre-existing condition improved [Not Recovered/Not Resolved]
  - Condition aggravated [Not Recovered/Not Resolved]

NARRATIVE: CASE EVENT DATE: 201411
